FAERS Safety Report 6636105-4 (Version None)
Quarter: 2010Q1

REPORT INFORMATION
  Report Type: 
  Country: None (occurrence: None)
  Receive Date: 20100311
  Receipt Date: 20100223
  Transmission Date: 20100710
  Serious: Yes (Hospitalization)
  Sender: FDA-Public Use
  Company Number: 1000001275

PATIENT
  Age: 45 Year
  Sex: Female
  Weight: 71.2147 kg

DRUGS (6)
  1. MILNACIPRAN (OPEN-LABEL) (MILNACIPRAN HYDROCHLORIDE) [Suspect]
     Indication: FIBROMYALGIA
     Dosage: 100 MG (150 MG, 2 IN 1 D), ORAL
     Route: 048
     Dates: start: 20080708
  2. OMEPRAZOLE [Concomitant]
  3. TYLENOL-500 [Concomitant]
  4. IBUPROFEN [Concomitant]
  5. ALBUTEROL (INHALANT) [Concomitant]
  6. LORATADINE [Concomitant]

REACTIONS (9)
  - ATELECTASIS [None]
  - BLOOD GLUCOSE INCREASED [None]
  - CLOSTRIDIUM DIFFICILE COLITIS [None]
  - CULTURE STOOL POSITIVE [None]
  - DIVERTICULITIS [None]
  - ESCHERICHIA INFECTION [None]
  - PLEURAL EFFUSION [None]
  - PNEUMONIA [None]
  - URINARY TRACT INFECTION [None]
